FAERS Safety Report 15609830 (Version 1)
Quarter: 2018Q4

REPORT INFORMATION
  Report Type: Spontaneous
  Country: FR (occurrence: FR)
  Receive Date: 20181113
  Receipt Date: 20181113
  Transmission Date: 20190205
  Serious: Yes (Hospitalization)
  Sender: FDA-Public Use
  Company Number: FR-TEVA-2018-FR-974786

PATIENT
  Age: 50 Year
  Sex: Male
  Weight: 67 kg

DRUGS (2)
  1. TAZOCILLINE [Suspect]
     Active Substance: PIPERACILLIN SODIUM\TAZOBACTAM SODIUM
     Indication: ARTHRITIS
     Route: 042
     Dates: start: 20180801, end: 20180803
  2. VANCOMYCINE [Suspect]
     Active Substance: VANCOMYCIN
     Indication: ARTHRITIS
     Route: 042
     Dates: start: 20180801, end: 20180806

REACTIONS (1)
  - Acute kidney injury [Recovering/Resolving]

NARRATIVE: CASE EVENT DATE: 20180806
